FAERS Safety Report 21625982 (Version 1)
Quarter: 2022Q4

REPORT INFORMATION
  Report Type: Spontaneous
  Country: PT (occurrence: PT)
  Receive Date: 20221122
  Receipt Date: 20221122
  Transmission Date: 20230113
  Serious: Yes (Other)
  Sender: FDA-Public Use
  Company Number: None

PATIENT
  Age: 55 Year
  Sex: Female

DRUGS (9)
  1. TRAMADOL HYDROCHLORIDE [Suspect]
     Active Substance: TRAMADOL HYDROCHLORIDE
     Indication: Induction of anaesthesia
     Dosage: UNK
     Route: 065
     Dates: start: 2018
  2. PARECOXIB [Suspect]
     Active Substance: PARECOXIB
     Indication: Blepharoplasty
     Dosage: UNK
     Route: 065
     Dates: start: 2018
  3. PARECOXIB [Suspect]
     Active Substance: PARECOXIB
     Indication: Premedication
  4. DEXAMETHASONE [Concomitant]
     Active Substance: DEXAMETHASONE
     Indication: Induction of anaesthesia
     Dosage: UNK
     Route: 065
     Dates: start: 2018
  5. ROCURONIUM BROMIDE [Concomitant]
     Active Substance: ROCURONIUM BROMIDE
     Indication: Induction of anaesthesia
     Dosage: UNK
     Route: 065
     Dates: start: 2018
  6. CEFAZOLIN [Concomitant]
     Active Substance: CEFAZOLIN
     Indication: Anaesthetic premedication
     Dosage: UNK
     Route: 065
     Dates: start: 2018
  7. FENTANYL [Concomitant]
     Active Substance: FENTANYL
     Indication: Induction of anaesthesia
     Dosage: UNK
     Route: 065
     Dates: start: 2018
  8. PROPOFOL [Concomitant]
     Active Substance: PROPOFOL
     Indication: Induction of anaesthesia
     Dosage: UNK
     Route: 065
     Dates: start: 2018
  9. ONDANSETROM [ONDANSETRON] [Concomitant]
     Indication: Induction of anaesthesia
     Dosage: UNK
     Route: 065
     Dates: start: 2018

REACTIONS (2)
  - Erythema [Recovered/Resolved]
  - Injection site oedema [Recovered/Resolved]

NARRATIVE: CASE EVENT DATE: 20180101
